FAERS Safety Report 14355248 (Version 1)
Quarter: 2018Q1

REPORT INFORMATION
  Report Type: Spontaneous
  Country: FR (occurrence: FR)
  Receive Date: 20180105
  Receipt Date: 20180105
  Transmission Date: 20180509
  Serious: Yes (Hospitalization)
  Sender: FDA-Public Use
  Company Number: FR-PFIZER INC-2018000944

PATIENT
  Age: 2 Year
  Sex: Male

DRUGS (2)
  1. VINCRISTINE SULFATE. [Suspect]
     Active Substance: VINCRISTINE SULFATE
     Indication: NEUROBLASTOMA
     Dosage: 1.5 MG/M2, CYCLIC (0.93 MG ACCORDING TO THE CYCLE)
     Route: 041
     Dates: start: 20171028
  2. CISPLATINE ACCORD [Suspect]
     Active Substance: CISPLATIN
     Indication: NEUROBLASTOMA
     Dosage: 80 MG/M2, CYCLIC (50MG ACCORDING TO THE CYCLE)
     Route: 041
     Dates: start: 20171106

REACTIONS (1)
  - Venoocclusive disease [Not Recovered/Not Resolved]

NARRATIVE: CASE EVENT DATE: 20171112
